FAERS Safety Report 7727120-8 (Version None)
Quarter: 2011Q3

REPORT INFORMATION
  Report Type: 
  Country: None (occurrence: None)
  Receive Date: 20110902
  Receipt Date: 20110823
  Transmission Date: 20111222
  Serious: Yes (Other)
  Sender: FDA-Public Use
  Company Number: BR-ABBOTT-11P-020-0848973-00

PATIENT
  Age: 76 Year
  Sex: Female
  Weight: 90 kg

DRUGS (11)
  1. LEVOTHYROXINE SODIUM [Suspect]
     Indication: HYPOTHYROIDISM
  2. LEVOTHYROXINE SODIUM [Suspect]
  3. CIPROFLOXACIN [Concomitant]
  4. VALSARTAN [Concomitant]
     Indication: PRODUCT USED FOR UNKNOWN INDICATION
     Dosage: 80 MG DAILY
  5. MEROPENEM [Concomitant]
  6. INSULIN GLARGINE [Concomitant]
     Indication: PRODUCT USED FOR UNKNOWN INDICATION
     Dates: end: 20080301
  7. PANTOPRAZOLE [Suspect]
     Indication: PRODUCT USED FOR UNKNOWN INDICATION
     Dosage: 20 MG DAILY
  8. NORADRENALIN [Concomitant]
     Indication: PRODUCT USED FOR UNKNOWN INDICATION
  9. BROMOPRIDE [Concomitant]
     Indication: VOMITING
     Dosage: BEFORE EATING, WHEN NEEDED
  10. ANTIBIOTIC [Concomitant]
  11. ERTAPENEM [Concomitant]
     Route: 030

REACTIONS (3)
  - PLEURAL EFFUSION [None]
  - HYPOTHYROIDISM [None]
  - MALABSORPTION [None]
